FAERS Safety Report 4615520-4 (Version None)
Quarter: 2005Q1

REPORT INFORMATION
  Report Type: 
  Country: None (occurrence: None)
  Receive Date: 20050317
  Receipt Date: 20050304
  Transmission Date: 20050727
  Serious: Yes (Other)
  Sender: FDA-Public Use
  Company Number: HQWYE858104MAR05

PATIENT
  Age: 41 Year
  Sex: Male

DRUGS (6)
  1. EFFEXOR [Suspect]
     Dates: end: 20050101
  2. PEG-INTRON [Suspect]
     Indication: HEPATITIS C
     Dosage: SUBCUTANEOUS
     Route: 058
     Dates: start: 20050118
  3. RIBASPHERE [Suspect]
     Indication: HEPATITIS C
     Dosage: ORAL
     Route: 048
     Dates: start: 20050118
  4. FLONASE [Concomitant]
  5. MOTRIN [Concomitant]
  6. TYLENOL [Concomitant]

REACTIONS (2)
  - ABNORMAL BEHAVIOUR [None]
  - PARANOIA [None]
